FAERS Safety Report 7390143-5 (Version None)
Quarter: 2011Q2

REPORT INFORMATION
  Report Type: 
  Country: None (occurrence: None)
  Receive Date: 20110401
  Receipt Date: 20110321
  Transmission Date: 20111010
  Serious: Yes (Other)
  Sender: FDA-Public Use
  Company Number: PHHY2011US17923

PATIENT
  Sex: Female

DRUGS (2)
  1. GILENYA [Suspect]
     Indication: MULTIPLE SCLEROSIS
     Dosage: 0.5 MG, QD
     Route: 048
     Dates: start: 20110120
  2. TOPAMAX [Concomitant]
     Indication: HEADACHE
     Dosage: 75 MG, BID
     Dates: start: 20100506

REACTIONS (2)
  - NEPHROLITHIASIS [None]
  - BACK PAIN [None]
